FAERS Safety Report 4617751-6 (Version None)
Quarter: 2005Q1

REPORT INFORMATION
  Report Type: 
  Country: None (occurrence: None)
  Receive Date: 20050322
  Receipt Date: 20050314
  Transmission Date: 20050727
  Serious: Yes (Hospitalization)
  Sender: FDA-Public Use
  Company Number: CA-2005-003754

PATIENT
  Age: 51 Year
  Sex: Female

DRUGS (1)
  1. BETASERON [Suspect]
     Indication: MULTIPLE SCLEROSIS
     Dosage: 9.6 MIU, 3X/DAY, SUBCUTANEOUS
     Route: 058
     Dates: start: 20000508

REACTIONS (3)
  - ABASIA [None]
  - CYSTITIS [None]
  - FALL [None]
